FAERS Safety Report 7244025-X (Version None)
Quarter: 2011Q1

REPORT INFORMATION
  Report Type: 
  Country: None (occurrence: None)
  Receive Date: 20110125
  Receipt Date: 20110119
  Transmission Date: 20110831
  Serious: Yes (Hospitalization, Disabling, Other)
  Sender: FDA-Public Use
  Company Number: US-MERCK-0905USA04109

PATIENT
  Age: 58 Year
  Sex: Female
  Weight: 100 kg

DRUGS (1)
  1. FOSAMAX [Suspect]
     Indication: OSTEOPOROSIS
     Route: 048
     Dates: end: 20070801

REACTIONS (29)
  - HIATUS HERNIA [None]
  - COLON ADENOMA [None]
  - RHINITIS ALLERGIC [None]
  - CERUMEN IMPACTION [None]
  - OSTEONECROSIS OF JAW [None]
  - BREATHING-RELATED SLEEP DISORDER [None]
  - CHRONIC OBSTRUCTIVE PULMONARY DISEASE [None]
  - ABSCESS [None]
  - ANAEMIA [None]
  - TYPE 2 DIABETES MELLITUS [None]
  - JOINT INJURY [None]
  - BRONCHIECTASIS [None]
  - INTESTINAL POLYP [None]
  - GASTRITIS [None]
  - EXOSTOSIS [None]
  - CARDIAC DISORDER [None]
  - GASTRIC DISORDER [None]
  - ABDOMINAL HERNIA REPAIR [None]
  - ULCER [None]
  - GRANULOMA [None]
  - GASTROOESOPHAGEAL REFLUX DISEASE [None]
  - EPISTAXIS [None]
  - ORAL TORUS [None]
  - LUNG NEOPLASM [None]
  - EMPHYSEMA [None]
  - OESOPHAGEAL DISORDER [None]
  - ANKLE FRACTURE [None]
  - OCCULT BLOOD POSITIVE [None]
  - DENTAL CARIES [None]
